FAERS Safety Report 11125787 (Version 4)
Quarter: 2015Q3

REPORT INFORMATION
  Report Type: Spontaneous
  Country: US (occurrence: US)
  Receive Date: 20150520
  Receipt Date: 20150722
  Transmission Date: 20151125
  Serious: No
  Sender: FDA-Public Use
  Company Number: US-PFIZER INC-2015164029

PATIENT
  Age: 64 Year
  Sex: Female
  Weight: 70 kg

DRUGS (15)
  1. LYRICA [Suspect]
     Active Substance: PREGABALIN
     Dosage: 150 MG, 2X/DAY
  2. LYRICA [Suspect]
     Active Substance: PREGABALIN
     Dosage: 75 MG, UNK
  3. BUSPIRONE [Concomitant]
     Active Substance: BUSPIRONE HYDROCHLORIDE
     Dosage: 15 MG, 2X/DAY
  4. DETROL LA [Concomitant]
     Active Substance: TOLTERODINE TARTRATE
     Dosage: 4 MG, 1X/DAY
  5. VENTOLIN HFA [Concomitant]
     Active Substance: ALBUTEROL SULFATE
     Dosage: UNK, AS NEEDED
  6. LYRICA [Suspect]
     Active Substance: PREGABALIN
     Dosage: UNK
  7. WELLBUTRIN XL [Concomitant]
     Active Substance: BUPROPION HYDROCHLORIDE
     Dosage: 150 MG, 1X/DAY
  8. ADVAIR DISKUS [Concomitant]
     Active Substance: FLUTICASONE PROPIONATE\SALMETEROL XINAFOATE
     Indication: ASTHMA
     Dosage: 150 / 50, 2X/DAY
  9. VERAMYST [Concomitant]
     Active Substance: FLUTICASONE FUROATE
     Dosage: 27.5 ?G, 2X/DAY
  10. DEXILANT [Concomitant]
     Active Substance: DEXLANSOPRAZOLE
     Dosage: 60 MG, UNK
  11. CARAC [Concomitant]
     Active Substance: FLUOROURACIL
     Dosage: 0.5 %, UNK
  12. LYRICA [Suspect]
     Active Substance: PREGABALIN
     Dosage: 150 MG, 1X/DAY
  13. BEPREVE [Concomitant]
     Dosage: 1.5 %, AS NEEDED
     Route: 047
  14. LYRICA [Suspect]
     Active Substance: PREGABALIN
     Dosage: 150 MG, UNK
  15. CLARINEX [Concomitant]
     Active Substance: DESLORATADINE
     Dosage: 5 MG, SINGLE

REACTIONS (1)
  - Dizziness [Unknown]
